FAERS Safety Report 18255464 (Version 1)
Quarter: 2020Q3

REPORT INFORMATION
  Report Type: Report from Study
  Country: KR (occurrence: KR)
  Receive Date: 20200910
  Receipt Date: 20200910
  Transmission Date: 20201103
  Serious: Yes (Hospitalization)
  Sender: FDA-Public Use
  Company Number: KR-GILEAD-2017-0283155

PATIENT
  Age: 80 Year
  Sex: Male
  Weight: 60.3 kg

DRUGS (7)
  1. SOFOSBUVIR [Suspect]
     Active Substance: SOFOSBUVIR
     Indication: CHRONIC HEPATITIS C
     Dosage: 400 MG, QD
     Route: 048
     Dates: start: 20170111, end: 20170404
  2. ASPIRIN                            /00002701/ [Concomitant]
     Active Substance: ASPIRIN
     Indication: THROMBOSIS PROPHYLAXIS
     Dosage: UNK UNKNOWN, UNK
     Route: 065
     Dates: start: 20170517, end: 20170627
  3. ISUPREL [Concomitant]
     Active Substance: ISOPROTERENOL HYDROCHLORIDE
     Indication: PROPHYLAXIS
     Dosage: UNK UNKNOWN, UNK
     Route: 065
     Dates: start: 20170516, end: 20170516
  4. HEPARIN [Concomitant]
     Active Substance: HEPARIN SODIUM
     Indication: THROMBOSIS PROPHYLAXIS
     Dosage: UNK UNKNOWN, UNK
     Route: 065
     Dates: start: 20170516, end: 20170516
  5. CEFAZEDONE SODIUM [Concomitant]
     Active Substance: CEFAZEDONE
     Indication: INFECTION PROPHYLAXIS
     Dosage: UNK UNKNOWN, UNK
     Route: 065
     Dates: start: 20170516, end: 20170516
  6. RIBAVIRIN. [Suspect]
     Active Substance: RIBAVIRIN
     Indication: CHRONIC HEPATITIS C
     Dosage: 1000 MG, BID
     Route: 048
     Dates: start: 20170111, end: 20170404
  7. DEXILANT [Concomitant]
     Active Substance: DEXLANSOPRAZOLE
     Indication: PROPHYLAXIS AGAINST GASTROINTESTINAL ULCER
     Dosage: UNK UNKNOWN, UNK
     Route: 065
     Dates: start: 20170517, end: 20170517

REACTIONS (2)
  - Fatigue [Recovered/Resolved]
  - Palpitations [Recovered/Resolved]

NARRATIVE: CASE EVENT DATE: 20170118
